FAERS Safety Report 15644713 (Version 2)
Quarter: 2018Q4

REPORT INFORMATION
  Report Type: Spontaneous
  Country: JP (occurrence: JP)
  Receive Date: 20181121
  Receipt Date: 20181228
  Transmission Date: 20190205
  Serious: Yes (Hospitalization, Other)
  Sender: FDA-Public Use
  Company Number: JP-SA-2018SA314911

PATIENT
  Age: 64 Year
  Sex: Female
  Weight: 48 kg

DRUGS (4)
  1. LEVOFOLINATE YAKULT [Suspect]
     Active Substance: LEVOLEUCOVORIN CALCIUM
     Indication: COLON CANCER
     Dosage: UNK UNK, QD
     Route: 041
  2. ELPLAT [Suspect]
     Active Substance: OXALIPLATIN
     Indication: COLON CANCER
     Dosage: UNK UNK, QD
     Route: 041
  3. FLUOROURACIL. [Concomitant]
     Active Substance: FLUOROURACIL
  4. ERBITUX [Concomitant]
     Active Substance: CETUXIMAB

REACTIONS (1)
  - Foreign body reaction [Recovered/Resolved]
